FAERS Safety Report 4530042-7 (Version None)
Quarter: 2004Q4

REPORT INFORMATION
  Report Type: 
  Country: None (occurrence: None)
  Receive Date: 20041214
  Receipt Date: 20041202
  Transmission Date: 20050328
  Serious: Yes (Hospitalization)
  Sender: FDA-Public Use
  Company Number: S04-USA-07716-01

PATIENT
  Age: 45 Year
  Sex: Male

DRUGS (1)
  1. LEXAPRO [Suspect]
     Indication: DEPRESSION
     Dosage: 10 MG QD PO
     Route: 048
     Dates: start: 20041120, end: 20041130

REACTIONS (9)
  - BLOOD CREATINE PHOSPHOKINASE INCREASED [None]
  - GUILLAIN-BARRE SYNDROME [None]
  - HEADACHE [None]
  - IMMOBILE [None]
  - MYALGIA [None]
  - NAUSEA [None]
  - PARAESTHESIA [None]
  - SPEECH DISORDER [None]
  - VOMITING [None]
